FAERS Safety Report 8405709-0 (Version None)
Quarter: 2012Q2

REPORT INFORMATION
  Report Type: 
  Country: None (occurrence: None)
  Receive Date: 20120530
  Receipt Date: 20120530
  Transmission Date: 20120825
  Serious: No
  Sender: FDA-Public Use
  Company Number: None

PATIENT
  Age: 73 Year
  Sex: Male
  Weight: 87.3 kg

DRUGS (1)
  1. DIVALPROEX SODIUM [Suspect]
     Indication: MIGRAINE PROPHYLAXIS
     Dosage: 1000 MG AT BEDTIME PO
     Route: 048
     Dates: start: 20110817, end: 20120131

REACTIONS (1)
  - RASH [None]
